FAERS Safety Report 9106468 (Version 3)
Quarter: 2013Q2

REPORT INFORMATION
  Report Type: Spontaneous
  Country: US (occurrence: US)
  Receive Date: 20130221
  Receipt Date: 20130411
  Transmission Date: 20140414
  Serious: Yes (Other)
  Sender: FDA-Public Use
  Company Number: US-ALLERGAN-1302320US

PATIENT
  Age: 50 Year
  Sex: Female
  Weight: 90.7 kg

DRUGS (11)
  1. PREDNISOLONE ACETATE, 1.0% [Suspect]
     Indication: EYE SWELLING
     Dosage: 1 GTT, QID
     Route: 047
     Dates: start: 20130211, end: 20130211
  2. GENERIC PLAVIX [Concomitant]
     Indication: CEREBROVASCULAR ACCIDENT
     Dosage: 75 MG, QD
     Route: 048
     Dates: start: 201211
  3. OMEPRAZOLE DR [Concomitant]
     Indication: GASTROOESOPHAGEAL REFLUX DISEASE
     Dosage: 20 MG, QD
     Route: 048
  4. JANUVIA [Concomitant]
     Indication: DIABETES MELLITUS
     Dosage: 100 MG, QD
     Route: 048
  5. GENERIC LEXAPRO [Concomitant]
     Indication: DEPRESSION
     Dosage: 20 MG, QD
     Route: 048
  6. DOXEPIN [Concomitant]
     Indication: INSOMNIA
     Dosage: 125 MG, QHS
     Route: 048
  7. VITAMIN D3 [Concomitant]
     Indication: SUPPLEMENTATION THERAPY
     Dosage: 5000 MG, QD
     Route: 048
  8. GENERIC LIPITOR [Concomitant]
     Indication: BLOOD CHOLESTEROL INCREASED
     Dosage: 40 MG, QD
     Route: 048
  9. LOSARTAN POTASSIUM [Concomitant]
     Indication: BLOOD PRESSURE INCREASED
     Dosage: 25 MG, QD
     Route: 048
  10. NOVOLOG FLEX PEN [Concomitant]
     Indication: DIABETES MELLITUS
     Dosage: UNK, QD
     Route: 058
  11. LANTUS SOLOSTAR [Concomitant]
     Indication: DIABETES MELLITUS
     Dosage: 50 UNITS, BID
     Route: 058

REACTIONS (9)
  - Vitreous haemorrhage [Recovered/Resolved]
  - Visual acuity reduced [Unknown]
  - Retinal disorder [Unknown]
  - Blood pressure increased [Unknown]
  - Heart rate increased [Unknown]
  - Palpitations [Unknown]
  - Hyperhidrosis [Unknown]
  - Dysgeusia [Unknown]
  - Off label use [Unknown]
